FAERS Safety Report 5360348-3 (Version None)
Quarter: 2007Q2

REPORT INFORMATION
  Report Type: 
  Country: None (occurrence: None)
  Receive Date: 20070612
  Receipt Date: 20070606
  Transmission Date: 20071010
  Serious: Yes (Hospitalization)
  Sender: FDA-Public Use
  Company Number: 2007BI010511

PATIENT
  Age: 40 Year
  Sex: Male

DRUGS (1)
  1. AVONEX [Suspect]
     Indication: MULTIPLE SCLEROSIS
     Dosage: 30 UG; QW; IM
     Route: 030

REACTIONS (6)
  - COLONIC OBSTRUCTION [None]
  - GASTROINTESTINAL HAEMORRHAGE [None]
  - INFECTION [None]
  - MEGACOLON [None]
  - POST PROCEDURAL COMPLICATION [None]
  - SPINAL CORD DISORDER [None]
